FAERS Safety Report 5404876-0 (Version None)
Quarter: 2007Q3

REPORT INFORMATION
  Report Type: 
  Country: None (occurrence: None)
  Receive Date: 20070713
  Receipt Date: 20070426
  Transmission Date: 20080115
  Serious: Yes (Other)
  Sender: FDA-Public Use
  Company Number: US-JNJFOC-20060503171

PATIENT
  Age: 21 Year
  Sex: Female
  Weight: 63.5036 kg

DRUGS (4)
  1. ORTHO EVRA [Suspect]
     Indication: CONTRACEPTION
     Dosage: TRANSDERMAL
     Route: 062
     Dates: start: 20050501, end: 20050701
  2. AYGESTIN [Concomitant]
  3. LUPRON [Concomitant]
     Indication: ENDOMETRIOSIS
  4. DILAUDID [Concomitant]

REACTIONS (3)
  - ABDOMINAL PAIN [None]
  - ERYTHEMA [None]
  - THROMBOPHLEBITIS SUPERFICIAL [None]
